FAERS Safety Report 10572772 (Version 1)
Quarter: 2014Q4

REPORT INFORMATION
  Report Type: Spontaneous
  Country: US (occurrence: None)
  Receive Date: 20141106
  Receipt Date: 20141106
  Transmission Date: 20150529
  Serious: Yes (Hospitalization)
  Sender: FDA-Public Use
  Company Number: VAL_03569_2014

PATIENT
  Sex: Male

DRUGS (9)
  1. MAGNESIUM SULFATE. [Suspect]
     Active Substance: MAGNESIUM SULFATE
     Indication: HYPOMAGNESAEMIA
     Dosage: NOT OTHERWISE SPECIFIED
     Route: 042
  2. LABETALOL [Concomitant]
     Active Substance: LABETALOL\LABETALOL HYDROCHLORIDE
  3. CALCITRIOL. [Suspect]
     Active Substance: CALCITRIOL
     Indication: PRODUCT USED FOR UNKNOWN INDICATION
     Dosage: 1 ML QD, 1 MCG/ML
     Route: 048
  4. AMLODIPINE [Concomitant]
     Active Substance: AMLODIPINE BESYLATE
  5. METRONIDAZOLE. [Concomitant]
     Active Substance: METRONIDAZOLE
  6. NUTROPIN [Concomitant]
     Active Substance: SOMATROPIN
  7. FERROUS SULFATE [Concomitant]
     Active Substance: FERROUS SULFATE\FERROUS SULFATE, DRIED
  8. SODIUM CITRATE. [Concomitant]
     Active Substance: SODIUM CITRATE
  9. ACETAMINOPHEN. [Concomitant]
     Active Substance: ACETAMINOPHEN

REACTIONS (11)
  - Renal impairment [None]
  - Generalised tonic-clonic seizure [None]
  - Blood pressure decreased [None]
  - Stoma site reaction [None]
  - Weight increased [None]
  - Rash [None]
  - Catheter site extravasation [None]
  - Electrolyte imbalance [None]
  - Clostridium difficile colitis [None]
  - Upper respiratory tract infection [None]
  - Candida infection [None]
